FAERS Safety Report 7125135-4 (Version None)
Quarter: 2010Q4

REPORT INFORMATION
  Report Type: 
  Country: None (occurrence: None)
  Receive Date: 20101129
  Receipt Date: 20101020
  Transmission Date: 20110411
  Serious: Yes (Other)
  Sender: FDA-Public Use
  Company Number: US-AMGEN-USASP2010001021

PATIENT

DRUGS (13)
  1. EPOGEN [Suspect]
     Indication: RENAL FAILURE CHRONIC
     Dosage: UNK
     Dates: start: 20070901
  2. EPOGEN [Suspect]
     Dosage: 12000 IU, 3 TIMES/WK
     Route: 042
  3. CLONIDINE [Concomitant]
  4. ATENOLOL [Concomitant]
  5. NIFEDIPINE [Concomitant]
  6. RENVELA [Concomitant]
  7. CALCITRIOL [Concomitant]
  8. ZEMPLAR [Concomitant]
     Dosage: UNK
     Dates: start: 20100101, end: 20100101
  9. DIALYVITE 3000 [Concomitant]
  10. CINACALCET [Concomitant]
  11. ERGOCALCIFEROL [Concomitant]
  12. VITAMIN C                          /00008001/ [Concomitant]
     Route: 042
     Dates: start: 20100101, end: 20100101
  13. IRON [Suspect]

REACTIONS (2)
  - APLASIA PURE RED CELL [None]
  - SERUM FERRITIN INCREASED [None]
